FAERS Safety Report 24269656 (Version 2)
Quarter: 2024Q3

REPORT INFORMATION
  Report Type: Report from Study
  Country: US (occurrence: US)
  Receive Date: 20240830
  Receipt Date: 20240920
  Transmission Date: 20241016
  Serious: Yes (Hospitalization, Other)
  Sender: ABBVIE
  Company Number: US-ABBVIE-5895057

PATIENT
  Sex: Female

DRUGS (1)
  1. HUMIRA [Suspect]
     Active Substance: ADALIMUMAB
     Indication: Colitis ulcerative
     Route: 058
     Dates: start: 20240522

REACTIONS (6)
  - Anaemia [Unknown]
  - Alopecia [Not Recovered/Not Resolved]
  - Injection site rash [Not Recovered/Not Resolved]
  - Shock [Unknown]
  - Dehydration [Unknown]
  - Rash [Unknown]

NARRATIVE: CASE EVENT DATE: 20240101
